FAERS Safety Report 13702414 (Version 1)
Quarter: 2017Q2

REPORT INFORMATION
  Report Type: Spontaneous
  Country: DE (occurrence: DE)
  Receive Date: 20170629
  Receipt Date: 20170629
  Transmission Date: 20170830
  Serious: Yes (Hospitalization)
  Sender: FDA-Public Use
  Company Number: DE-TEVA-783308GER

PATIENT
  Age: 77 Year
  Sex: Female

DRUGS (5)
  1. LETROZOLE. [Suspect]
     Active Substance: LETROZOLE
     Indication: BREAST CANCER FEMALE
     Route: 065
     Dates: start: 201505, end: 201606
  2. DENOSUMAB [Suspect]
     Active Substance: DENOSUMAB
     Indication: BREAST CANCER FEMALE
     Route: 065
     Dates: start: 201611, end: 201704
  3. PACLITAXEL. [Concomitant]
     Active Substance: PACLITAXEL
     Dosage: ONCE WEEKLY
     Dates: start: 201702, end: 201704
  4. PALBOCICLIB [Suspect]
     Active Substance: PALBOCICLIB
     Indication: BREAST CANCER FEMALE
     Route: 065
     Dates: start: 201611, end: 201702
  5. FULVESTRANT [Suspect]
     Active Substance: FULVESTRANT
     Indication: BREAST CANCER FEMALE
     Route: 065
     Dates: start: 201606, end: 201702

REACTIONS (5)
  - Ascites [Recovering/Resolving]
  - Jaundice cholestatic [Recovering/Resolving]
  - Hepatic enzyme increased [Recovering/Resolving]
  - Liver injury [Recovering/Resolving]
  - Neoplasm progression [Recovering/Resolving]

NARRATIVE: CASE EVENT DATE: 201610
